FAERS Safety Report 7597031-X (Version None)
Quarter: 2011Q3

REPORT INFORMATION
  Report Type: 
  Country: None (occurrence: None)
  Receive Date: 20110708
  Receipt Date: 20110704
  Transmission Date: 20111222
  Serious: No
  Sender: FDA-Public Use
  Company Number: ZA-PFIZER INC-2011146209

PATIENT
  Age: 25 Year
  Sex: Female

DRUGS (13)
  1. HEPARIN [Concomitant]
     Dosage: UNK
  2. TYGACIL [Concomitant]
     Dosage: UNK
  3. PULMICORT [Concomitant]
     Dosage: UNK
  4. ATROVENT [Concomitant]
     Dosage: UNK
  5. VITAMIN D [Concomitant]
     Dosage: UNK
  6. VITAMIN E [Concomitant]
     Dosage: UNK
  7. NEXIUM [Concomitant]
     Dosage: UNK
  8. VFEND [Suspect]
     Indication: SYSTEMIC CANDIDA
     Dosage: 400 MG, 2X/DAY
     Dates: start: 20110627
  9. TARGOCID [Concomitant]
     Dosage: UNK
  10. ZITHROMAX [Concomitant]
     Dosage: UNK
  11. VFEND [Suspect]
     Dosage: 200 MG, 2X/DAY
  12. VITAMIN K TAB [Concomitant]
     Dosage: UNK
  13. PULMOZYME [Concomitant]
     Dosage: UNK

REACTIONS (1)
  - VISION BLURRED [None]
